FAERS Safety Report 14874455 (Version 1)
Quarter: 2018Q2

REPORT INFORMATION
  Report Type: Report from Study
  Country: None (occurrence: CA)
  Receive Date: 20180510
  Receipt Date: 20180510
  Transmission Date: 20180711
  Serious: Yes (Hospitalization, Disabling)
  Sender: FDA-Public Use
  Company Number: CA-ABBVIE-18K-028-2351258-00

PATIENT
  Sex: Male
  Weight: 64 kg

DRUGS (1)
  1. DUODOPA [Suspect]
     Active Substance: CARBIDOPA\LEVODOPA
     Indication: PARKINSON^S DISEASE
     Dosage: DOSING MORNING BOLUS: 11.8ML?CONTINUOUS DOSE RATE: 2.2ML/H?EXTRA DOSE: 1ML
     Route: 050
     Dates: start: 20170226

REACTIONS (2)
  - Device kink [Not Recovered/Not Resolved]
  - Hospitalisation [Not Recovered/Not Resolved]
